FAERS Safety Report 12308215 (Version 2)
Quarter: 2016Q2

REPORT INFORMATION
  Report Type: Spontaneous
  Country: US (occurrence: US)
  Receive Date: 20160426
  Receipt Date: 20160505
  Transmission Date: 20160815
  Serious: Yes (Other)
  Sender: FDA-Public Use
  Company Number: US-BAUSCH-BL-2016-008409

PATIENT
  Age: 66 Year
  Sex: Male

DRUGS (2)
  1. PROVENGE [Suspect]
     Active Substance: SIPULEUCEL-T
     Indication: PROSTATE CANCER
     Route: 042
     Dates: start: 20160314, end: 20160314
  2. PROVENGE [Suspect]
     Active Substance: SIPULEUCEL-T
     Route: 042
     Dates: start: 20160328, end: 20160328

REACTIONS (6)
  - Pain [Unknown]
  - Back pain [Recovering/Resolving]
  - Cervical vertebral fracture [Unknown]
  - Swelling [Unknown]
  - Metastasis [Unknown]
  - Oedema [Unknown]

NARRATIVE: CASE EVENT DATE: 2016
